FAERS Safety Report 20240009 (Version 1)
Quarter: 2021Q4

REPORT INFORMATION
  Report Type: Spontaneous
  Country: CA (occurrence: CA)
  Receive Date: 20211228
  Receipt Date: 20211228
  Transmission Date: 20220303
  Serious: Yes (Other)
  Sender: FDA-Public Use
  Company Number: CA-SA-SAC20211222001347

PATIENT
  Age: 51 Year

DRUGS (5)
  1. LEFLUNOMIDE [Suspect]
     Active Substance: LEFLUNOMIDE
     Indication: Product used for unknown indication
     Dosage: UNK
     Route: 065
  2. FOLIC ACID [Suspect]
     Active Substance: FOLIC ACID
     Indication: Product used for unknown indication
     Dosage: UNK
     Route: 065
  3. METHOTREXATE [Suspect]
     Active Substance: METHOTREXATE
     Indication: Product used for unknown indication
     Dosage: 25 MG
     Route: 058
  4. KETOPROFEN [Concomitant]
     Active Substance: KETOPROFEN
     Dosage: UNK
     Route: 061
  5. NAPROXEN [Concomitant]
     Active Substance: NAPROXEN
     Dosage: 50 MG
     Route: 058

REACTIONS (13)
  - Enthesopathy [Unknown]
  - Headache [Unknown]
  - Inflammation [Unknown]
  - Joint swelling [Unknown]
  - Nausea [Unknown]
  - Pain [Unknown]
  - Photosensitivity reaction [Unknown]
  - Plantar fasciitis [Unknown]
  - Psoriasis [Unknown]
  - Rash [Unknown]
  - Spinal osteoarthritis [Unknown]
  - Synovitis [Unknown]
  - Foot deformity [Unknown]
